FAERS Safety Report 20153711 (Version 1)
Quarter: 2021Q4

REPORT INFORMATION
  Report Type: Spontaneous
  Country: BR (occurrence: BR)
  Receive Date: 20211207
  Receipt Date: 20211207
  Transmission Date: 20220303
  Serious: Yes (Death, Hospitalization)
  Sender: FDA-Public Use
  Company Number: BR-PINT-2021-Belinostat-186

PATIENT
  Age: 64 Year
  Sex: Male

DRUGS (1)
  1. BELEODAQ [Suspect]
     Active Substance: BELINOSTAT
     Indication: Product used for unknown indication
     Dosage: 2 CYCLES
     Route: 065

REACTIONS (2)
  - COVID-19 [Fatal]
  - Bone marrow transplant [Fatal]
